FAERS Safety Report 24031055 (Version 3)
Quarter: 2025Q3

REPORT INFORMATION
  Report Type: Spontaneous
  Country: JP (occurrence: JP)
  Receive Date: 20240628
  Receipt Date: 20250902
  Transmission Date: 20251020
  Serious: Yes (Hospitalization, Other)
  Sender: APELLIS PHARMACEUTICALS
  Company Number: JP-BIOVITRUM-2024-JP-008784

PATIENT

DRUGS (3)
  1. EMPAVELI [Suspect]
     Active Substance: PEGCETACOPLAN
     Indication: Paroxysmal nocturnal haemoglobinuria
     Dosage: TWICE/WEEK
     Route: 058
     Dates: start: 20240129
  2. EMPAVELI [Suspect]
     Active Substance: PEGCETACOPLAN
     Dosage: TWICE/WEEK
     Route: 058
     Dates: start: 20240209, end: 20240521
  3. VONOPRAZAN FUMARATE [Concomitant]
     Active Substance: VONOPRAZAN FUMARATE
     Indication: Product used for unknown indication

REACTIONS (3)
  - Haemolysis [Recovered/Resolved]
  - Infection [Unknown]
  - Nasopharyngitis [Recovering/Resolving]

NARRATIVE: CASE EVENT DATE: 20240520
